FAERS Safety Report 7388275-0 (Version None)
Quarter: 2011Q2

REPORT INFORMATION
  Report Type: 
  Country: None (occurrence: None)
  Receive Date: 20110401
  Receipt Date: 20101026
  Transmission Date: 20111010
  Serious: Yes (Hospitalization, Other)
  Sender: FDA-Public Use
  Company Number: US-BAYER-201020369NA

PATIENT
  Weight: 84 kg

DRUGS (11)
  1. LISINOPRIL [Concomitant]
  2. DILAUDID [Concomitant]
  3. ATENOLOL [Concomitant]
     Dosage: 25 MG, QD
     Route: 048
  4. HYDROMORPHONE HCL [Concomitant]
     Dosage: 8 MG, QD
     Route: 048
  5. AMBIEN [Concomitant]
     Dosage: 5 MG, HS
     Route: 048
  6. SIMVASTATIN [Concomitant]
     Dosage: 40 MG, HS
     Route: 048
  7. YASMIN [Suspect]
     Indication: PRODUCT USED FOR UNKNOWN INDICATION
     Dosage: 1 DF, QD
     Route: 048
     Dates: start: 20060901, end: 20080301
  8. RIZATRIPTAN [Concomitant]
     Dosage: 5 MG, QD
     Route: 048
  9. ZOLPIDEM TARTRATE [Concomitant]
     Dosage: HS
  10. SERTRALINE HYDROCHLORIDE [Concomitant]
     Dosage: 100 MG, QD
  11. ZOLOFT [Concomitant]
     Dosage: 100 MG, UNK

REACTIONS (2)
  - PAIN [None]
  - ACUTE MYOCARDIAL INFARCTION [None]
